FAERS Safety Report 12318998 (Version 3)
Quarter: 2016Q2

REPORT INFORMATION
  Report Type: Spontaneous
  Country: PL (occurrence: PL)
  Receive Date: 20160429
  Receipt Date: 20160525
  Transmission Date: 20160815
  Serious: Yes (Other)
  Sender: FDA-Public Use
  Company Number: PL-GILEAD-2016-0210627

PATIENT
  Age: 58 Year
  Sex: Male

DRUGS (2)
  1. RIBAVIRIN. [Concomitant]
     Active Substance: RIBAVIRIN
     Indication: HEPATITIS C
  2. HARVONI [Suspect]
     Active Substance: LEDIPASVIR\SOFOSBUVIR
     Indication: HEPATITIS C
     Dosage: UNK
     Route: 065
     Dates: start: 20160104

REACTIONS (8)
  - Red blood cell count abnormal [Unknown]
  - Platelet count abnormal [Unknown]
  - Asthenia [Unknown]
  - Nausea [Unknown]
  - End stage renal disease [Unknown]
  - Myalgia [Unknown]
  - Haemoglobin abnormal [Unknown]
  - Vomiting [Unknown]
